FAERS Safety Report 21446570 (Version 3)
Quarter: 2024Q1

REPORT INFORMATION
  Report Type: Spontaneous
  Country: US (occurrence: US)
  Receive Date: 20221012
  Receipt Date: 20240315
  Transmission Date: 20240409
  Serious: No
  Sender: FDA-Public Use
  Company Number: US-PFIZER INC-202101295015

PATIENT
  Age: 74 Year
  Sex: Female

DRUGS (10)
  1. XELJANZ [Suspect]
     Active Substance: TOFACITINIB CITRATE
     Indication: Rheumatoid arthritis
     Dosage: 5 MG
  2. XELJANZ [Suspect]
     Active Substance: TOFACITINIB CITRATE
     Dosage: 5 MG, 2X/DAY
     Route: 048
  3. XELJANZ [Suspect]
     Active Substance: TOFACITINIB CITRATE
     Dosage: 5 MG, 1X/DAY
     Route: 048
  4. IRBESARTAN [Concomitant]
     Active Substance: IRBESARTAN
  5. RESTASIS [Concomitant]
     Active Substance: CYCLOSPORINE
  6. PROLIA [Concomitant]
     Active Substance: DENOSUMAB
  7. VITAMINS NOS [Concomitant]
     Active Substance: VITAMINS
  8. FISH OIL [Concomitant]
     Active Substance: FISH OIL
  9. BIOTIN [Concomitant]
     Active Substance: BIOTIN
  10. VITAMIN D2 [Concomitant]
     Active Substance: ERGOCALCIFEROL

REACTIONS (2)
  - Aphonia [Unknown]
  - Off label use [Unknown]
